FAERS Safety Report 7605288-1 (Version None)
Quarter: 2011Q3

REPORT INFORMATION
  Report Type: 
  Country: None (occurrence: None)
  Receive Date: 20110713
  Receipt Date: 20110707
  Transmission Date: 20111222
  Serious: Yes (Other)
  Sender: FDA-Public Use
  Company Number: US-AMGEN-USASP2011026589

PATIENT
  Age: 78 Year
  Sex: Female
  Weight: 63.492 kg

DRUGS (14)
  1. PRILOSEC [Concomitant]
     Dosage: 20 MG, QD
     Route: 048
     Dates: start: 20100618
  2. SENNA                              /00142201/ [Concomitant]
     Route: 048
  3. HYDRALAZINE HCL [Concomitant]
     Dosage: 25 MG, TID
     Route: 048
  4. ACETAMINOPHEN [Concomitant]
     Dosage: 500 MG, INTERMITTENT
  5. NPLATE [Suspect]
     Indication: IDIOPATHIC THROMBOCYTOPENIC PURPURA
     Dosage: 65 A?G, QWK
     Route: 058
     Dates: start: 20100716
  6. SEPTRA DS [Concomitant]
     Dosage: UNK UNK, QD
     Route: 048
     Dates: start: 20100621
  7. B12                                /00056201/ [Concomitant]
     Dosage: 250 A?G, QD
     Route: 048
  8. ATENOLOL [Concomitant]
     Dosage: 25 MG, QD
     Route: 048
     Dates: start: 20100618
  9. CATAPRES-TTS-1 [Concomitant]
     Dosage: 0.1 MG, QWK
     Route: 062
     Dates: start: 20100716
  10. PREDNISONE [Concomitant]
     Dosage: 5 MG, QD
     Route: 048
  11. ZETIA [Concomitant]
     Dosage: 10 MG, QD
     Route: 048
  12. CORTICOSTEROIDS [Concomitant]
     Indication: IDIOPATHIC THROMBOCYTOPENIC PURPURA
  13. MULTIVITAMIN                       /00097801/ [Concomitant]
     Route: 048
  14. COUMADIN [Concomitant]

REACTIONS (2)
  - THROMBOCYTOPENIA [None]
  - DEEP VEIN THROMBOSIS [None]
